FAERS Safety Report 5822741-1 (Version None)
Quarter: 2008Q3

REPORT INFORMATION
  Report Type: 
  Country: None (occurrence: None)
  Receive Date: 20080725
  Receipt Date: 20070917
  Transmission Date: 20090109
  Serious: No
  Sender: FDA-Public Use
  Company Number: US-AMGEN-KDL238867

PATIENT
  Sex: Female
  Weight: 77.2 kg

DRUGS (6)
  1. PROCRIT [Suspect]
     Indication: RENAL FAILURE CHRONIC
  2. LIPITOR [Concomitant]
  3. COREG [Concomitant]
  4. SYNTHROID [Concomitant]
  5. INSULIN [Concomitant]
  6. UNSPECIFIED ANTIHYPERTENSIVE AGENT [Concomitant]

REACTIONS (3)
  - ASTHENIA [None]
  - DRUG INEFFECTIVE [None]
  - FEELING COLD [None]
